FAERS Safety Report 24381793 (Version 1)
Quarter: 2024Q4

REPORT INFORMATION
  Report Type: Spontaneous
  Country: JP (occurrence: JP)
  Receive Date: 20241001
  Receipt Date: 20241001
  Transmission Date: 20250115
  Serious: Yes (Hospitalization)
  Sender: ACCORD
  Company Number: JP-MLMSERVICE-20240912-PI190515-00077-1

PATIENT
  Age: 68 Year
  Sex: Female

DRUGS (9)
  1. CAPECITABINE [Suspect]
     Active Substance: CAPECITABINE
     Indication: Metastases to the mediastinum
     Dosage: 3-WEEKLY REGIMEN XELOX
  2. OXALIPLATIN [Suspect]
     Active Substance: OXALIPLATIN
     Indication: Adenocarcinoma of appendix
     Dosage: 3-WEEKLY 8 COURSES OF XELOX
  3. BEVACIZUMAB [Suspect]
     Active Substance: BEVACIZUMAB
     Indication: Adenocarcinoma of appendix
     Dosage: 3-WEEKLY BEVACIZUMAB
  4. CAPECITABINE [Suspect]
     Active Substance: CAPECITABINE
     Indication: Metastases to lymph nodes
     Dosage: 3-WEEKLY REGIMEN XELOX
  5. OXALIPLATIN [Suspect]
     Active Substance: OXALIPLATIN
     Indication: Metastases to lymph nodes
     Dosage: 3-WEEKLY 8 COURSES OF XELOX
  6. BEVACIZUMAB [Suspect]
     Active Substance: BEVACIZUMAB
     Indication: Metastases to the mediastinum
     Dosage: 3-WEEKLY BEVACIZUMAB
  7. CAPECITABINE [Suspect]
     Active Substance: CAPECITABINE
     Indication: Adenocarcinoma of appendix
     Dosage: 3-WEEKLY REGIMEN XELOX
  8. OXALIPLATIN [Suspect]
     Active Substance: OXALIPLATIN
     Indication: Metastases to the mediastinum
     Dosage: 3-WEEKLY 8 COURSES OF XELOX
  9. BEVACIZUMAB [Suspect]
     Active Substance: BEVACIZUMAB
     Indication: Metastases to lymph nodes
     Dosage: 3-WEEKLY BEVACIZUMAB

REACTIONS (4)
  - Brain abscess [Recovering/Resolving]
  - Parvimonas infection [Recovered/Resolved]
  - Fusobacterium infection [Recovered/Resolved]
  - Streptococcal infection [Recovered/Resolved]
